FAERS Safety Report 10215601 (Version 1)
Quarter: 2014Q2

REPORT INFORMATION
  Report Type: Spontaneous
  Country: NO (occurrence: NO)
  Receive Date: 20140604
  Receipt Date: 20140604
  Transmission Date: 20141212
  Serious: Yes (Hospitalization)
  Sender: FDA-Public Use
  Company Number: NO-ACCORD-024056

PATIENT
  Age: 86 Year
  Sex: Female

DRUGS (3)
  1. QUETIAPINE [Suspect]
     Indication: PRODUCT USED FOR UNKNOWN INDICATION
     Dates: end: 2014
  2. CIPRAMIL [Interacting]
     Indication: DEPRESSION
     Route: 048
     Dates: start: 201211, end: 20140423
  3. LITHIUM [Interacting]
     Indication: PRODUCT USED FOR UNKNOWN INDICATION

REACTIONS (2)
  - Bruxism [Recovered/Resolved]
  - Drug interaction [Recovered/Resolved]
